FAERS Safety Report 16784137 (Version 2)
Quarter: 2019Q3

REPORT INFORMATION
  Report Type: Spontaneous
  Country: None (occurrence: CN)
  Receive Date: 20190909
  Receipt Date: 20190911
  Transmission Date: 20191005
  Serious: Yes (Hospitalization, Other)
  Sender: FDA-Public Use
  Company Number: CN-ASTELLAS-2019US035271

PATIENT
  Age: 52 Year
  Sex: Male
  Weight: 62 kg

DRUGS (8)
  1. FLUCONAZOLE. [Interacting]
     Active Substance: FLUCONAZOLE
     Route: 048
  2. FLUCONAZOLE. [Interacting]
     Active Substance: FLUCONAZOLE
     Indication: PNEUMONIA CRYPTOCOCCAL
     Route: 048
  3. METHYLPREDNISOLONE. [Concomitant]
     Active Substance: METHYLPREDNISOLONE
     Indication: RENAL TRANSPLANT
     Dosage: UNK UNK, UNKNOWN FREQ.U
     Route: 065
  4. TACROLIMUS. [Interacting]
     Active Substance: TACROLIMUS
     Dosage: 0.5 MG, EVERY 12 HOURS
     Route: 065
  5. TACROLIMUS. [Interacting]
     Active Substance: TACROLIMUS
     Dosage: UNK UNK, UNKNOWN FREQ. (0.5 MG IN THE MORNING AND 0.25 MG IN THE EVENING)
     Route: 065
  6. MYCOPHENOLATE MOFETIL. [Concomitant]
     Active Substance: MYCOPHENOLATE MOFETIL
     Indication: RENAL TRANSPLANT
     Route: 065
  7. FLUCONAZOLE. [Interacting]
     Active Substance: FLUCONAZOLE
     Route: 048
  8. TACROLIMUS. [Suspect]
     Active Substance: TACROLIMUS
     Indication: RENAL TRANSPLANT
     Route: 065

REACTIONS (3)
  - Drug interaction [Recovered/Resolved]
  - Pneumonia cryptococcal [Recovered/Resolved]
  - Immunosuppressant drug level increased [Recovered/Resolved]
